FAERS Safety Report 6673118-0 (Version None)
Quarter: 2010Q2

REPORT INFORMATION
  Report Type: 
  Country: None (occurrence: None)
  Receive Date: 20100408
  Receipt Date: 20100325
  Transmission Date: 20101027
  Serious: Yes (Hospitalization, Other)
  Sender: FDA-Public Use
  Company Number: US-BAYER-201020774GPV

PATIENT
  Age: 77 Year
  Sex: Female

DRUGS (4)
  1. ACETYLSALICYLIC ACID [Suspect]
     Indication: ACUTE CORONARY SYNDROME
  2. ENOXAPARIN SODIUM [Suspect]
     Indication: ACUTE CORONARY SYNDROME
  3. METOPROLOL TARTRATE [Suspect]
     Indication: ACUTE CORONARY SYNDROME
  4. ADENOSINE [Suspect]
     Indication: CARDIAC STRESS TEST

REACTIONS (7)
  - ABDOMINAL PAIN [None]
  - ABDOMINAL WALL HAEMATOMA [None]
  - CONFUSIONAL STATE [None]
  - HAEMOGLOBIN DECREASED [None]
  - HYPOTENSION [None]
  - NAUSEA [None]
  - PELVIC HAEMATOMA [None]
